FAERS Safety Report 9879943 (Version 1)
Quarter: 2014Q1

REPORT INFORMATION
  Report Type: Spontaneous
  Country: US (occurrence: US)
  Receive Date: 20140207
  Receipt Date: 20140207
  Transmission Date: 20141002
  Serious: No
  Sender: FDA-Public Use
  Company Number: US-009507513-1401USA014418

PATIENT
  Sex: 0

DRUGS (2)
  1. JANUMET [Suspect]
     Dosage: STRENGTH 50/500
     Route: 048
  2. JANUVIA [Suspect]
     Route: 048

REACTIONS (2)
  - Medication residue present [Unknown]
  - Product quality issue [Unknown]
